FAERS Safety Report 10699780 (Version 1)
Quarter: 2015Q1

REPORT INFORMATION
  Report Type: Report from Study
  Country: JP (occurrence: JP)
  Receive Date: 20150109
  Receipt Date: 20150109
  Transmission Date: 20150721
  Serious: Yes (Other)
  Sender: FDA-Public Use
  Company Number: JP-009507513-1501JPN001328

PATIENT
  Age: 55 Year
  Sex: Female
  Weight: 56 kg

DRUGS (9)
  1. PEGINTRON [Suspect]
     Active Substance: PEGINTERFERON ALFA-2B
     Dosage: 1 MICROGRAM PER KILOGRAM, QW
     Route: 058
     Dates: start: 20140825, end: 2014
  2. SIMEPREVIR [Suspect]
     Active Substance: SIMEPREVIR
     Indication: CHRONIC HEPATITIS C
     Dosage: 100 MG, QD (1 IN 1 DAY)
     Route: 048
     Dates: start: 20140819, end: 20141111
  3. ISODINE [Concomitant]
     Active Substance: POVIDONE-IODINE
     Indication: PROPHYLAXIS
     Dosage: UNK, PRN (IN 1 AS NECESSARY)
     Route: 049
     Dates: start: 20140908
  4. LOXOPROFEN [Concomitant]
     Active Substance: LOXOPROFEN
     Indication: PROPHYLAXIS
     Dosage: DAILY DOSE: 60 MG, PRN (IN 1 AS NECESSARY)
     Route: 048
     Dates: start: 20140819
  5. TEPRENONE [Concomitant]
     Active Substance: TEPRENONE
     Dosage: 150 MG, QD
     Route: 065
     Dates: start: 20140819
  6. ANTEBATE [Concomitant]
     Active Substance: BETAMETHASONE DIPROPIONATE
     Indication: PROPHYLAXIS
     Dosage: ONCE OR TWO TIMES PER DAY
     Route: 061
     Dates: start: 20141006
  7. RIBAVIRIN. [Suspect]
     Active Substance: RIBAVIRIN
     Indication: CHRONIC HEPATITIS C
     Dosage: 600 MG, QD (1 IN 1 DAY)
     Route: 048
     Dates: start: 20140819
  8. PEGINTRON [Suspect]
     Active Substance: PEGINTERFERON ALFA-2B
     Indication: CHRONIC HEPATITIS C
     Dosage: 1.4 MICROGRAM PER KILOGRAM, QW
     Route: 058
     Dates: start: 20140819, end: 201408
  9. PEGINTRON [Suspect]
     Active Substance: PEGINTERFERON ALFA-2B
     Dosage: 0.8 MICROGRAM PER KILOGRAM, QW
     Route: 058
     Dates: start: 20140908

REACTIONS (3)
  - Headache [Recovered/Resolved]
  - Constipation [Recovered/Resolved]
  - Platelet count decreased [Not Recovered/Not Resolved]

NARRATIVE: CASE EVENT DATE: 20140820
